FAERS Safety Report 10204855 (Version 1)
Quarter: 2014Q2

REPORT INFORMATION
  Report Type: Spontaneous
  Country: US (occurrence: US)
  Receive Date: 20140529
  Receipt Date: 20140529
  Transmission Date: 20141212
  Serious: No
  Sender: FDA-Public Use
  Company Number: US-009507513-1405USA014120

PATIENT
  Sex: 0

DRUGS (2)
  1. ZETIA [Suspect]
     Indication: HYPERLIPIDAEMIA
     Dosage: 10 MG, QD
     Route: 048
  2. CRESTOR [Suspect]

REACTIONS (1)
  - Liver function test abnormal [Recovering/Resolving]
